FAERS Safety Report 5753692-9 (Version None)
Quarter: 2008Q2

REPORT INFORMATION
  Report Type: 
  Country: None (occurrence: None)
  Receive Date: 20080527
  Receipt Date: 20080527
  Transmission Date: 20081010
  Serious: Yes (Hospitalization)
  Sender: FDA-Public Use
  Company Number: None

PATIENT
  Sex: Female
  Weight: 63.5036 kg

DRUGS (2)
  1. ENBREL [Suspect]
     Indication: PSORIATIC ARTHROPATHY
     Dosage: 50 MCG WEEKLY SQ
     Route: 058
     Dates: start: 20070801
  2. MIROXICAM [Concomitant]

REACTIONS (2)
  - CELLULITIS [None]
  - EXCORIATION [None]
